FAERS Safety Report 14148395 (Version 1)
Quarter: 2017Q4

REPORT INFORMATION
  Report Type: Spontaneous
  Country: US (occurrence: None)
  Receive Date: 20171031
  Receipt Date: 20171031
  Transmission Date: 20180321
  Serious: No
  Sender: FDA-Public Use
  Company Number: None

PATIENT
  Age: 45 Year
  Sex: Male

DRUGS (1)
  1. HUMIRA [Suspect]
     Active Substance: ADALIMUMAB
     Indication: PSORIASIS
     Route: 058
     Dates: start: 20170725, end: 20170804

REACTIONS (7)
  - Skin disorder [None]
  - Dysuria [None]
  - Feeling hot [None]
  - Fatigue [None]
  - Nausea [None]
  - Myalgia [None]
  - Erythema [None]

NARRATIVE: CASE EVENT DATE: 20170804
